FAERS Safety Report 11515541 (Version 1)
Quarter: 2015Q3

REPORT INFORMATION
  Report Type: Spontaneous
  Country: US (occurrence: US)
  Receive Date: 20150916
  Receipt Date: 20150916
  Transmission Date: 20151125
  Serious: Yes (Other)
  Sender: FDA-Public Use
  Company Number: US-GLAXOSMITHKLINE INC.-US2015GSK130772

PATIENT
  Age: 38 Year
  Sex: Male

DRUGS (1)
  1. BENLYSTA [Suspect]
     Active Substance: BELIMUMAB

REACTIONS (5)
  - Bacterial test positive [Unknown]
  - Arthralgia [Unknown]
  - Synovitis [Unknown]
  - Joint swelling [Unknown]
  - Joint arthroplasty [Unknown]
